FAERS Safety Report 15022441 (Version 3)
Quarter: 2018Q3

REPORT INFORMATION
  Report Type: Spontaneous
  Country: IL (occurrence: IL)
  Receive Date: 20180618
  Receipt Date: 20180808
  Transmission Date: 20181010
  Serious: Yes (Other)
  Sender: FDA-Public Use
  Company Number: IL-ACTELION-A-CH2018-173716

PATIENT
  Age: 63 Year
  Sex: Female

DRUGS (7)
  1. UPTRAVI [Interacting]
     Active Substance: SELEXIPAG
     Dosage: 200 MCG, QD
     Route: 048
     Dates: start: 20180709
  2. NORMALOL [Concomitant]
     Active Substance: ATENOLOL
  3. UPTRAVI [Suspect]
     Active Substance: SELEXIPAG
     Indication: PULMONARY ARTERIAL HYPERTENSION
     Dosage: 200 MCG, BID
     Route: 048
     Dates: start: 20180531, end: 20180603
  4. FEXOFENADINE [Interacting]
     Active Substance: FEXOFENADINE\FEXOFENADINE HYDROCHLORIDE
     Indication: PRODUCT USED FOR UNKNOWN INDICATION
     Route: 065
  5. OMEPRADEX [Concomitant]
     Active Substance: OMEPRAZOLE
  6. UPTRAVI [Interacting]
     Active Substance: SELEXIPAG
     Dosage: 200 MCG, QD
     Route: 048
     Dates: start: 20180725, end: 20180730
  7. AERIUS [Concomitant]
     Active Substance: DESLORATADINE

REACTIONS (9)
  - Weight increased [Unknown]
  - Pharyngeal oedema [Not Recovered/Not Resolved]
  - Pyrexia [Recovered/Resolved]
  - Swelling face [Not Recovered/Not Resolved]
  - Headache [Not Recovered/Not Resolved]
  - Vocal cord inflammation [Not Recovered/Not Resolved]
  - Generalised oedema [Recovered/Resolved]
  - Drug interaction [Unknown]
  - Face oedema [Unknown]

NARRATIVE: CASE EVENT DATE: 20180603
